FAERS Safety Report 25229211 (Version 1)
Quarter: 2025Q2

REPORT INFORMATION
  Report Type: Spontaneous
  Country: US (occurrence: US)
  Receive Date: 20250423
  Receipt Date: 20250423
  Transmission Date: 20250716
  Serious: No
  Sender: MERCK SHARP & DOHME LLC
  Company Number: US-009507513-2270427

PATIENT
  Sex: Female
  Weight: 49.9 kg

DRUGS (27)
  1. WINREVAIR [Suspect]
     Active Substance: SOTATERCEPT-CSRK
     Indication: Product used for unknown indication
  2. WINREVAIR [Suspect]
     Active Substance: SOTATERCEPT-CSRK
  3. WINREVAIR [Suspect]
     Active Substance: SOTATERCEPT-CSRK
  4. WINREVAIR [Suspect]
     Active Substance: SOTATERCEPT-CSRK
  5. OPSUMIT [Concomitant]
     Active Substance: MACITENTAN
  6. SPIRONOLACTONE [Concomitant]
     Active Substance: SPIRONOLACTONE
  7. AMIODARONE HYDROCHLORIDE [Concomitant]
     Active Substance: AMIODARONE HYDROCHLORIDE
  8. OXYGEN [Concomitant]
     Active Substance: OXYGEN
  9. LINEZOLID [Concomitant]
     Active Substance: LINEZOLID
  10. Midodrine HCL (Midodrine hydrochloride) [Concomitant]
  11. Ciprofloxacin HCL (Ciprofloxacin hydrochloride) [Concomitant]
  12. TORSEMIDE [Concomitant]
     Active Substance: TORSEMIDE
  13. FERROUS SULFATE [Concomitant]
     Active Substance: FERROUS SULFATE
  14. REMODULIN [Suspect]
     Active Substance: TREPROSTINIL
     Indication: Pulmonary arterial hypertension
     Route: 058
     Dates: start: 20230130
  15. MIRENA [Concomitant]
     Active Substance: LEVONORGESTREL
  16. METOPROLOL TARTRATE [Concomitant]
     Active Substance: METOPROLOL TARTRATE
  17. METOPROLOL SUCCINATE [Concomitant]
     Active Substance: METOPROLOL SUCCINATE
  18. Multivitamins (Ascorbic acid, Ergocalciferol, Folic acid, Nicotinam... [Concomitant]
     Route: 048
  19. TYLENOL [Concomitant]
     Active Substance: ACETAMINOPHEN
  20. Albuterol sulfate hfa (Salbutamol sulfate) [Concomitant]
  21. ACETAMINOPHEN [Concomitant]
     Active Substance: ACETAMINOPHEN
  22. AMOXICILLIN [Concomitant]
     Active Substance: AMOXICILLIN
  23. SILDENAFIL CITRATE [Concomitant]
     Active Substance: SILDENAFIL CITRATE
  24. Rhinocort allergy (Budesonide) [Concomitant]
  25. FERROUS GLUCONATE [Concomitant]
     Active Substance: FERROUS GLUCONATE
  26. Klor-con m20 (Potassium chloride) [Concomitant]
  27. ELIQUIS [Concomitant]
     Active Substance: APIXABAN

REACTIONS (1)
  - Injection site bruising [Unknown]
